FAERS Safety Report 20658576 (Version 1)
Quarter: 2022Q1

REPORT INFORMATION
  Report Type: Report from Study
  Country: US (occurrence: US)
  Receive Date: 20220331
  Receipt Date: 20220331
  Transmission Date: 20220424
  Serious: No
  Sender: FDA-Public Use
  Company Number: US-AIMMUNE THERAPEUTICS, INC.-2022AIMT00238

PATIENT

DRUGS (2)
  1. ALLERGENIC EXTRACT- PEANUT ARACHIS HYPOGAEA [Suspect]
     Active Substance: ALLERGENIC EXTRACT- PEANUT ARACHIS HYPOGAEA
     Indication: Food allergy
     Dosage: 80 MG, 1X/DAY
     Route: 048
  2. ALLERGENIC EXTRACT- PEANUT ARACHIS HYPOGAEA [Suspect]
     Active Substance: ALLERGENIC EXTRACT- PEANUT ARACHIS HYPOGAEA
     Dosage: 80 MG, 1X/DAY, LAST DOSE PRIOR TO EVENTS
     Route: 048
     Dates: start: 20220119, end: 20220119

REACTIONS (5)
  - Asthma exercise induced [Recovered/Resolved]
  - Chest discomfort [Recovered/Resolved]
  - Anxiety [Unknown]
  - Urticaria [Recovered/Resolved]
  - Dyspnoea [Recovered/Resolved]

NARRATIVE: CASE EVENT DATE: 20220119
